FAERS Safety Report 9380321 (Version 1)
Quarter: 2013Q3

REPORT INFORMATION
  Report Type: Spontaneous
  Country: US (occurrence: US)
  Receive Date: 20130702
  Receipt Date: 20130702
  Transmission Date: 20140515
  Serious: Yes (Other)
  Sender: FDA-Public Use
  Company Number: US-ROXANE LABORATORIES, INC.-2013-RO-01063RO

PATIENT
  Age: 43 Year
  Sex: Female

DRUGS (6)
  1. HYDROMORPHONE [Suspect]
     Indication: NEURALGIA
     Route: 048
  2. HYDROMORPHONE [Suspect]
     Route: 048
  3. OXYCODONE [Suspect]
     Indication: NEURALGIA
     Dosage: 120 MG
     Route: 048
  4. NORTRIPTYLINE [Suspect]
     Indication: NEURALGIA
     Dosage: 50 MG
     Route: 048
  5. GABAPENTIN [Suspect]
     Indication: NEURALGIA
     Dosage: 3600 MG
     Route: 048
  6. CARBAMAZEPINE [Suspect]
     Indication: NEURALGIA
     Dosage: 400 MG
     Route: 048

REACTIONS (5)
  - Hyperaesthesia [Recovered/Resolved]
  - Allodynia [Recovered/Resolved]
  - Oedema peripheral [Unknown]
  - Abnormal dreams [Unknown]
  - Sensory disturbance [Unknown]
